FAERS Safety Report 23203018 (Version 1)
Quarter: 2023Q4

REPORT INFORMATION
  Report Type: Spontaneous
  Country: US (occurrence: US)
  Receive Date: 20231120
  Receipt Date: 20231120
  Transmission Date: 20240109
  Serious: No
  Sender: FDA-Public Use
  Company Number: US-BRISTOL-MYERS SQUIBB COMPANY-2023-166546

PATIENT
  Age: 57 Year
  Sex: Female

DRUGS (1)
  1. THALOMID [Suspect]
     Active Substance: THALIDOMIDE
     Indication: Granuloma
     Route: 048
     Dates: start: 202305

REACTIONS (4)
  - Product storage error [Unknown]
  - Granuloma [Unknown]
  - Off label use [Unknown]
  - Condition aggravated [Unknown]
